FAERS Safety Report 23432070 (Version 1)
Quarter: 2024Q1

REPORT INFORMATION
  Report Type: Spontaneous
  Country: US (occurrence: None)
  Receive Date: 20240122
  Receipt Date: 20240122
  Transmission Date: 20240410
  Serious: Yes (Other)
  Sender: FDA-Public Use
  Company Number: None

PATIENT
  Age: 46 Year
  Sex: Female
  Weight: 76.5 kg

DRUGS (12)
  1. GABAPENTIN [Suspect]
     Active Substance: GABAPENTIN
     Indication: Affective disorder
     Dosage: OTHER QUANTITY : 2 CAPSULE(S);?FREQUENCY : EVERY 12 HOURS;?
     Route: 048
     Dates: start: 20230916, end: 20240121
  2. TOPAMAX [Concomitant]
     Active Substance: TOPIRAMATE
  3. METOPROLOL [Concomitant]
     Active Substance: METOPROLOL
  4. Valtrex (daily 4 Shingles) [Concomitant]
  5. ADDERALL [Concomitant]
     Active Substance: AMPHETAMINE ASPARTATE\AMPHETAMINE SULFATE\DEXTROAMPHETAMINE SACCHARATE\DEXTROAMPHETAMINE SULFATE
  6. ZUBSOLV [Concomitant]
     Active Substance: BUPRENORPHINE HYDROCHLORIDE\NALOXONE HYDROCHLORIDE
  7. ZUBSOLV [Concomitant]
     Active Substance: BUPRENORPHINE HYDROCHLORIDE\NALOXONE HYDROCHLORIDE
  8. CLARITIN [Concomitant]
     Active Substance: LORATADINE
  9. Primatine Tablets [Concomitant]
  10. AFRIN [Concomitant]
     Active Substance: OXYMETAZOLINE
  11. IRON [Concomitant]
     Active Substance: IRON
  12. ROBITUSSIN DM [Concomitant]
     Active Substance: DEXTROMETHORPHAN HYDROBROMIDE\GUAIFENESIN

REACTIONS (6)
  - Dyspnoea [None]
  - Insomnia [None]
  - Sleep apnoea syndrome [None]
  - Pulmonary pain [None]
  - Throat tightness [None]
  - Lymphadenopathy [None]

NARRATIVE: CASE EVENT DATE: 20240122
